FAERS Safety Report 10498074 (Version 1)
Quarter: 2014Q4

REPORT INFORMATION
  Report Type: Spontaneous
  Country: IT (occurrence: None)
  Receive Date: 20141002
  Receipt Date: 20141002
  Transmission Date: 20150528
  Serious: Yes (Other)
  Sender: FDA-Public Use
  Company Number: 20141969-000

PATIENT
  Age: 52 Year
  Sex: Female

DRUGS (4)
  1. SULFOSALAZINE [Concomitant]
  2. METHOTREXATE [Suspect]
     Active Substance: METHOTREXATE
     Indication: RHEUMATOID ARTHRITIS
     Dosage: X 10 MG IN 1 WEEK
  3. HYDROXYCHLOROQUINE [Concomitant]
     Active Substance: HYDROXYCHLOROQUINE
  4. ETANERCEPT [Suspect]
     Active Substance: ETANERCEPT
     Indication: RHEUMATOID ARTHRITIS
     Dates: start: 2007

REACTIONS (4)
  - Encephalitis [None]
  - Epilepsy [None]
  - Partial seizures [None]
  - Meningitis aseptic [None]

NARRATIVE: CASE EVENT DATE: 20110801
